FAERS Safety Report 10049007 (Version 2)
Quarter: 2014Q2

REPORT INFORMATION
  Report Type: Report from Study
  Country: JP (occurrence: JP)
  Receive Date: 20140331
  Receipt Date: 20140419
  Transmission Date: 20141212
  Serious: Yes (Death, Other)
  Sender: FDA-Public Use
  Company Number: JP-009507513-1403JPN014324

PATIENT
  Age: 79 Year
  Sex: Female
  Weight: 56 kg

DRUGS (13)
  1. CANCIDAS FOR INTRAVENOUS DRIP INFUSION 70MG [Suspect]
     Indication: FEBRILE NEUTROPENIA
     Dosage: 70 MG, QD
     Route: 041
     Dates: start: 20130628, end: 20130628
  2. CANCIDAS FOR INTRAVENOUS DRIP INFUSION 70MG [Suspect]
     Dosage: UNK
  3. CANCIDAS FOR INTRAVENOUS DRIP INFUSION 50MG [Suspect]
     Indication: FEBRILE NEUTROPENIA
     Dosage: 50 MG, QD
     Route: 041
     Dates: start: 20130629, end: 20130704
  4. CYLOCIDE [Suspect]
     Indication: LEUKAEMIA
     Dosage: 140 MG, QD
     Route: 042
     Dates: start: 20130625, end: 20130701
  5. IDAMYCIN [Suspect]
     Indication: LEUKAEMIA
     Dosage: 15 MG, QD
     Route: 042
     Dates: start: 20130625, end: 20130627
  6. ITRACONAZOLE [Concomitant]
     Indication: FEBRILE NEUTROPENIA
     Dosage: TOTAL DOSE OF 20 ML PER DAY,DIVIDED DOSE FREQUENCY UNKNOWN, FORMULATION: POR
     Route: 048
     Dates: start: 20130619, end: 20130703
  7. PRIMOBOLAN TABLETS [Concomitant]
     Indication: MYELODYSPLASTIC SYNDROME
     Dosage: 5 MG, TID
     Route: 048
     Dates: start: 20130601, end: 20130630
  8. POLYMYXIN B SULFATE [Concomitant]
     Indication: ANTIBIOTIC THERAPY
     Dosage: 3 DF, TID
     Route: 048
     Dates: start: 20130617, end: 20130701
  9. PREDONINE [Concomitant]
     Indication: LEUKAEMIA
     Dosage: 10 MG, BID
     Route: 048
     Dates: start: 20130624, end: 20130707
  10. RASBURICASE [Concomitant]
     Indication: HYPERURICAEMIA
     Dosage: 10.5 MG, QD
     Route: 042
     Dates: start: 20130625, end: 20130629
  11. GRANISETRON [Concomitant]
     Indication: PROPHYLAXIS OF NAUSEA AND VOMITING
     Dosage: 3 MG, QD
     Route: 042
     Dates: start: 20130627, end: 20130701
  12. MEROPENEM [Concomitant]
     Indication: SEPSIS
     Dosage: 0.5 G, TID
     Route: 051
     Dates: start: 20130628, end: 20130704
  13. PRIDOL [Concomitant]
     Indication: SEPTIC SHOCK
     Dosage: 1 G, QD
     Route: 051
     Dates: start: 20130628, end: 20130630

REACTIONS (5)
  - Septic shock [Fatal]
  - Leukaemia [Fatal]
  - White blood cell count decreased [Fatal]
  - Neutrophil count decreased [Fatal]
  - Drug ineffective [Unknown]
